FAERS Safety Report 11857770 (Version 1)
Quarter: 2015Q4

REPORT INFORMATION
  Report Type: Spontaneous
  Country: US (occurrence: None)
  Receive Date: 20151221
  Receipt Date: 20151221
  Transmission Date: 20160305
  Serious: Yes (Life-Threatening, Disabling)
  Sender: FDA-Public Use
  Company Number: None

PATIENT
  Age: 35 Year

DRUGS (3)
  1. DAILY MULTI VITAMIN [Concomitant]
  2. DEPO-MEDROL [Suspect]
     Active Substance: METHYLPREDNISOLONE ACETATE
     Indication: BACK PAIN
     Dosage: 1 SHOT  INJECTED INOT SPINAL AREA
  3. MEDICAL MARIJUANA [Concomitant]
     Active Substance: CANNABIS SATIVA SUBSP. INDICA TOP

REACTIONS (11)
  - Headache [None]
  - Nausea [None]
  - Vomiting [None]
  - Muscular weakness [None]
  - Photophobia [None]
  - Pain [None]
  - Wrong technique in product usage process [None]
  - Hypoaesthesia [None]
  - Dizziness [None]
  - Feeling abnormal [None]
  - Arachnoiditis [None]

NARRATIVE: CASE EVENT DATE: 20090720
